FAERS Safety Report 8777405 (Version 1)
Quarter: 2012Q4

REPORT INFORMATION
  Report Type: 
  Country: DE (occurrence: JP)
  Receive Date: 20120911
  Receipt Date: 20120911
  Transmission Date: 20130627
  Serious: Yes (Death, Hospitalization, Other)
  Sender: FDA-Public Use
  Company Number: JP-BRISTOL-MYERS SQUIBB COMPANY-16927816

PATIENT
  Age: 76 Year
  Sex: Male
  Weight: 65 kg

DRUGS (4)
  1. ERBITUX SOLN FOR INF 5MG/ML [Suspect]
     Indication: COLORECTAL CANCER
     Route: 042
     Dates: start: 20120615, end: 20120702
  2. TOPOTECIN [Concomitant]
     Indication: COLORECTAL CANCER
     Dosage: 15Jun12-02Jul12:250mg
02Jul12-02Jul12:150mg/m2
     Route: 041
     Dates: start: 20120615, end: 20120702
  3. CALCIUM FOLINATE [Concomitant]
     Indication: COLORECTAL CANCER
     Dosage: IV also,340 mg 1 in 2 week
     Route: 041
     Dates: start: 20120615, end: 20120702
  4. 5-FLUOROURACIL [Concomitant]
     Indication: COLORECTAL CANCER
     Dosage: 3Jul-3Jul12-IV drip-1 in 2wk
IV also given.
15Jun12-02Jul12:680mg,
16Jun12-04Jul12:4100mg
     Route: 040
     Dates: start: 20120702, end: 20120702

REACTIONS (2)
  - Death [Fatal]
  - Personality disorder [Unknown]
